FAERS Safety Report 5955076-7 (Version None)
Quarter: 2008Q4

REPORT INFORMATION
  Report Type: 
  Country: None (occurrence: None)
  Receive Date: 20081117
  Receipt Date: 20081110
  Transmission Date: 20090506
  Serious: Yes (Hospitalization)
  Sender: FDA-Public Use
  Company Number: B0545786A

PATIENT
  Age: 39 Year
  Sex: Female

DRUGS (2)
  1. ELONTRIL [Suspect]
     Indication: DRUG USE FOR UNKNOWN INDICATION
     Dosage: 1050MG PER DAY
     Route: 048
     Dates: start: 20081103, end: 20081103
  2. TOPAMAX [Concomitant]
     Indication: EPILEPSY
     Dosage: 200MG PER DAY
     Route: 048

REACTIONS (4)
  - AGITATION [None]
  - CONVULSION [None]
  - ELECTROCARDIOGRAM QT PROLONGED [None]
  - OVERDOSE [None]
